FAERS Safety Report 13802302 (Version 1)
Quarter: 2017Q3

REPORT INFORMATION
  Report Type: Spontaneous
  Country: US (occurrence: US)
  Receive Date: 20170727
  Receipt Date: 20170727
  Transmission Date: 20171127
  Serious: Yes (Hospitalization)
  Sender: FDA-Public Use
  Company Number: None

PATIENT
  Sex: Female

DRUGS (1)
  1. FORTEO [Suspect]
     Active Substance: TERIPARATIDE
     Indication: OSTEOPOROSIS
     Route: 058

REACTIONS (7)
  - Neoplasm malignant [None]
  - Abdominal pain upper [None]
  - Stomach mass [None]
  - Asthenia [None]
  - Bone disorder [None]
  - Liver disorder [None]
  - Feeding disorder [None]
